FAERS Safety Report 14634975 (Version 2)
Quarter: 2018Q1

REPORT INFORMATION
  Report Type: Report from Study
  Country: HU (occurrence: HU)
  Receive Date: 20180314
  Receipt Date: 20180323
  Transmission Date: 20180509
  Serious: Yes (Hospitalization)
  Sender: FDA-Public Use
  Company Number: HU-ROCHE-2082564

PATIENT
  Age: 61 Year
  Sex: Female
  Weight: 57 kg

DRUGS (22)
  1. LENDORMIN [Concomitant]
     Active Substance: BROTIZOLAM
     Indication: INSOMNIA
     Route: 065
     Dates: start: 20090629
  2. ENOXAPARIN [Concomitant]
     Active Substance: ENOXAPARIN
     Indication: THROMBOSIS PROPHYLAXIS
     Route: 065
     Dates: start: 20180215
  3. TAMSULOSIN [Concomitant]
     Active Substance: TAMSULOSIN
     Indication: DYSURIA
     Route: 065
     Dates: start: 200405
  4. EFIENT [Concomitant]
     Active Substance: PRASUGREL HYDROCHLORIDE
     Indication: THROMBOSIS PROPHYLAXIS
     Route: 065
     Dates: start: 20140205, end: 20180215
  5. PROTIFAR [Concomitant]
     Indication: FATIGUE
     Route: 065
     Dates: start: 20180129, end: 20180215
  6. LEVOTHYROXINE SODIUM. [Concomitant]
     Active Substance: LEVOTHYROXINE SODIUM
     Indication: HYPOTHYROIDISM
     Route: 065
     Dates: start: 201109
  7. PANTOPRAZOLE [Concomitant]
     Active Substance: PANTOPRAZOLE
     Indication: HYPERCHLORHYDRIA
     Route: 065
     Dates: start: 20140205
  8. CERUCAL [Concomitant]
     Active Substance: METOCLOPRAMIDE HYDROCHLORIDE
     Indication: NAUSEA
     Route: 065
     Dates: start: 200906, end: 20180215
  9. SPIRONOLACTON [Concomitant]
     Active Substance: SPIRONOLACTONE
     Indication: MYOCARDIAL ISCHAEMIA
     Route: 065
     Dates: start: 20170209, end: 20180215
  10. ROSUVASTATIN. [Concomitant]
     Active Substance: ROSUVASTATIN
     Indication: MYOCARDIAL ISCHAEMIA
     Route: 065
     Dates: start: 20160927, end: 20180215
  11. MEGESTROL [Concomitant]
     Active Substance: MEGESTROL
     Indication: DECREASED APPETITE
     Route: 065
     Dates: start: 20170209, end: 20180215
  12. FENTANYL. [Concomitant]
     Active Substance: FENTANYL
     Indication: PAIN
     Route: 065
     Dates: start: 20170209
  13. TOLPERISONE [Concomitant]
     Active Substance: TOLPERISONE
     Indication: DEPRESSION
     Route: 065
     Dates: start: 20170209, end: 20180215
  14. VEMURAFENIB. [Suspect]
     Active Substance: VEMURAFENIB
     Indication: MALIGNANT MELANOMA
     Dosage: DATE OF MOST RECENT DOSE OF VEMURAFENIB PRIOR TO HOSPITALISATION: 13/FEB/2018
     Route: 048
     Dates: start: 20150512
  15. FRONTIN [Concomitant]
     Active Substance: ALPRAZOLAM
     Indication: ANXIETY
     Route: 065
     Dates: start: 200706, end: 20180215
  16. INSPRA (HUNGARY) [Concomitant]
     Indication: HYPERTENSION
     Route: 065
     Dates: start: 20140205
  17. FURON [Concomitant]
     Active Substance: FUROSEMIDE
     Indication: MYOCARDIAL ISCHAEMIA
     Route: 065
     Dates: start: 20140205
  18. AKTIL (HUNGARY) [Concomitant]
     Indication: PNEUMONIA
     Route: 065
     Dates: start: 20180201, end: 20180207
  19. CLOPIDOGREL [Concomitant]
     Active Substance: CLOPIDOGREL BISULFATE
     Indication: PROPHYLAXIS
     Route: 065
     Dates: start: 20180215
  20. BISOPROLOL [Concomitant]
     Active Substance: BISOPROLOL
     Indication: HYPERTENSION
     Route: 065
     Dates: start: 20150205
  21. MIRTAZAPINE. [Concomitant]
     Active Substance: MIRTAZAPINE
     Indication: DEPRESSION
     Route: 065
     Dates: start: 20170209, end: 20180215
  22. PIRACETAM [Concomitant]
     Active Substance: PIRACETAM
     Indication: MYOCARDIAL ISCHAEMIA
     Route: 065
     Dates: start: 20170209, end: 20180215

REACTIONS (2)
  - Myopathy toxic [Recovering/Resolving]
  - Paraparesis [Recovering/Resolving]

NARRATIVE: CASE EVENT DATE: 20180212
